FAERS Safety Report 8567890-2 (Version None)
Quarter: 2012Q3

REPORT INFORMATION
  Report Type: 
  Country: None (occurrence: None)
  Receive Date: 20120803
  Receipt Date: 20120731
  Transmission Date: 20120928
  Serious: Yes (Other)
  Sender: FDA-Public Use
  Company Number: US-TEVA-351558USA

PATIENT
  Sex: Female

DRUGS (1)
  1. TREANDA [Suspect]
     Indication: CHRONIC LYMPHOCYTIC LEUKAEMIA
     Dosage: Q 4 WEEKS
     Route: 042
     Dates: start: 20111220, end: 20120516

REACTIONS (1)
  - HEPATIC MASS [None]
